FAERS Safety Report 8152909-3 (Version None)
Quarter: 2012Q1

REPORT INFORMATION
  Report Type: 
  Country: None (occurrence: None)
  Receive Date: 20120221
  Receipt Date: 20120210
  Transmission Date: 20120608
  Serious: Yes (Other)
  Sender: FDA-Public Use
  Company Number: US-US-EMD SERONO, INC.-7113091

PATIENT
  Sex: Female

DRUGS (4)
  1. CALCIUM SUPPLEMENTS [Concomitant]
  2. REBIF [Suspect]
     Indication: MULTIPLE SCLEROSIS
     Route: 058
     Dates: start: 20100712
  3. VITAMIN D [Concomitant]
  4. VITAMIN B-12 [Concomitant]

REACTIONS (7)
  - LIVER FUNCTION TEST ABNORMAL [None]
  - OPTIC NEURITIS [None]
  - SKIN DISORDER [None]
  - WHITE BLOOD CELL COUNT DECREASED [None]
  - RASH [None]
  - FACIAL PAIN [None]
  - INJECTION SITE SWELLING [None]
